FAERS Safety Report 5860650-2 (Version None)
Quarter: 2008Q3

REPORT INFORMATION
  Report Type: 
  Country: None (occurrence: None)
  Receive Date: 20080827
  Receipt Date: 20071008
  Transmission Date: 20090109
  Serious: No
  Sender: FDA-Public Use
  Company Number: US-ABBOTT-07P-163-0420134-00

PATIENT
  Sex: Male
  Weight: 81.72 kg

DRUGS (4)
  1. COATED PDS [Suspect]
     Indication: BLOOD CHOLESTEROL
     Route: 048
     Dates: start: 19920101
  2. ATORVASTATIN CALCIUM [Concomitant]
     Indication: BLOOD CHOLESTEROL
     Route: 048
  3. ESOMEPRAZOLE MAGNESIUM [Concomitant]
     Indication: GASTROOESOPHAGEAL REFLUX DISEASE
     Route: 048
  4. THYROID TAB [Concomitant]
     Indication: THYROID DISORDER
     Route: 048

REACTIONS (1)
  - FLUSHING [None]
